FAERS Safety Report 5058331-0 (Version None)
Quarter: 2006Q3

REPORT INFORMATION
  Report Type: 
  Country: None (occurrence: None)
  Receive Date: 20060721
  Receipt Date: 20060626
  Transmission Date: 20061208
  Serious: Yes (Other)
  Sender: FDA-Public Use
  Company Number: PHBS2006BE09664

PATIENT
  Age: 14 Year
  Sex: Male

DRUGS (1)
  1. RITALIN [Suspect]
     Route: 048

REACTIONS (7)
  - ABNORMAL BEHAVIOUR [None]
  - APNOEA [None]
  - DRUG WITHDRAWAL SYNDROME [None]
  - MALAISE [None]
  - MUSCLE SPASMS [None]
  - RESPIRATORY RATE INCREASED [None]
  - SYNCOPE [None]
